FAERS Safety Report 25036758 (Version 1)
Quarter: 2025Q1

REPORT INFORMATION
  Report Type: Spontaneous
  Country: CN (occurrence: CN)
  Receive Date: 20250304
  Receipt Date: 20250304
  Transmission Date: 20250409
  Serious: Yes (Other)
  Sender: ROCHE
  Company Number: CN-ROCHE-10000218377

PATIENT
  Age: 65 Year
  Sex: Female

DRUGS (3)
  1. UNSPECIFIED INGREDIENT [Suspect]
     Active Substance: UNSPECIFIED INGREDIENT
     Indication: Diffuse large B-cell lymphoma
     Route: 065
  2. POLIVY [Suspect]
     Active Substance: POLATUZUMAB VEDOTIN-PIIQ
     Indication: Diffuse large B-cell lymphoma
     Route: 042
  3. COLUMVI [Suspect]
     Active Substance: GLOFITAMAB-GXBM
     Indication: Diffuse large B-cell lymphoma
     Route: 042

REACTIONS (9)
  - Myelosuppression [Unknown]
  - Cytokine release syndrome [Unknown]
  - Disease progression [Unknown]
  - Haemophagocytic lymphohistiocytosis [Unknown]
  - Deep vein thrombosis [Unknown]
  - Insomnia [Unknown]
  - Granulocyte count decreased [Unknown]
  - Pyrexia [Unknown]
  - Cystitis interstitial [Unknown]
